FAERS Safety Report 6428173-X (Version None)
Quarter: 2009Q4

REPORT INFORMATION
  Report Type: 
  Country: None (occurrence: None)
  Receive Date: 20091105
  Receipt Date: 20091028
  Transmission Date: 20100525
  Serious: No
  Sender: FDA-Public Use
  Company Number: US-BAYER-200937657NA

PATIENT
  Sex: Female

DRUGS (1)
  1. YAZ [Suspect]
     Indication: DRUG USE FOR UNKNOWN INDICATION
     Dosage: TOTAL DAILY DOSE: 1 DF
     Route: 048
     Dates: start: 20090701, end: 20091001

REACTIONS (12)
  - ABDOMINAL DISTENSION [None]
  - ABDOMINAL PAIN UPPER [None]
  - ALOPECIA [None]
  - BACK PAIN [None]
  - BREAST TENDERNESS [None]
  - CHEST PAIN [None]
  - FATIGUE [None]
  - INCREASED APPETITE [None]
  - MIGRAINE [None]
  - NAUSEA [None]
  - VOMITING [None]
  - VULVOVAGINAL MYCOTIC INFECTION [None]
